FAERS Safety Report 16153144 (Version 1)
Quarter: 2019Q2

REPORT INFORMATION
  Report Type: Spontaneous
  Country: ES (occurrence: ES)
  Receive Date: 20190403
  Receipt Date: 20190403
  Transmission Date: 20190711
  Serious: Yes (Hospitalization)
  Sender: FDA-Public Use
  Company Number: ES-TEVA-2019-ES-1032681

PATIENT
  Age: 58 Year
  Sex: Female

DRUGS (2)
  1. NAPROXENO (2002A) [Suspect]
     Active Substance: NAPROXEN
     Indication: BACK PAIN
     Route: 048
     Dates: start: 20181217, end: 20181221
  2. ENALAPRIL 20 MG 30 COMPRIMIDOS (PRODUCT) [Concomitant]
     Indication: HYPERTENSION
     Dosage: 20 MILLIGRAM DAILY;
     Route: 048
     Dates: start: 20181003

REACTIONS (2)
  - Gastric ulcer [Recovered/Resolved]
  - Erosive duodenitis [Recovered/Resolved]

NARRATIVE: CASE EVENT DATE: 20181226
